FAERS Safety Report 11826969 (Version 1)
Quarter: 2015Q4

REPORT INFORMATION
  Report Type: Spontaneous
  Country: US (occurrence: US)
  Receive Date: 20151211
  Receipt Date: 20151211
  Transmission Date: 20160305
  Serious: Yes (Other)
  Sender: FDA-Public Use
  Company Number: US-ASTRAZENECA-2015SF22650

PATIENT
  Age: 25 Year
  Sex: Male
  Weight: 73.9 kg

DRUGS (8)
  1. CLONAZEPAM. [Suspect]
     Active Substance: CLONAZEPAM
     Indication: ANXIETY
     Route: 065
     Dates: start: 20151028, end: 201511
  2. XANAX [Suspect]
     Active Substance: ALPRAZOLAM
     Indication: ANXIETY
     Route: 048
  3. LISINOPRIL. [Suspect]
     Active Substance: LISINOPRIL
     Indication: HYPERTENSION
     Route: 048
  4. ALBUTEROL INHALER [Concomitant]
     Active Substance: ALBUTEROL
     Indication: BRONCHITIS
     Dosage: 2 PUFFS AS NEEDED
     Dates: start: 20151120
  5. SEROQUEL XR [Suspect]
     Active Substance: QUETIAPINE FUMARATE
     Route: 048
     Dates: start: 2015, end: 201511
  6. XANAX [Suspect]
     Active Substance: ALPRAZOLAM
     Indication: ANXIETY
     Dosage: 2MG TABLET BY MOUTH TWICE A DAY AS REQUIRED
     Route: 048
     Dates: start: 2009
  7. METFORMIN [Concomitant]
     Active Substance: METFORMIN HYDROCHLORIDE
     Indication: DIABETES MELLITUS
  8. ALBUTEROL INHALER [Concomitant]
     Active Substance: ALBUTEROL
     Indication: WHEEZING
     Dosage: 2 PUFFS AS NEEDED
     Dates: start: 20151120

REACTIONS (17)
  - Schizophrenia [Unknown]
  - Social phobia [Unknown]
  - Hypertension [Unknown]
  - Hepatitis B [Not Recovered/Not Resolved]
  - Hiccups [Not Recovered/Not Resolved]
  - Hunger [Not Recovered/Not Resolved]
  - Liver disorder [Unknown]
  - Tremor [Not Recovered/Not Resolved]
  - Skin ulcer [Not Recovered/Not Resolved]
  - Drug ineffective [Unknown]
  - Hepatitis C [Not Recovered/Not Resolved]
  - Insomnia [Not Recovered/Not Resolved]
  - Suicidal ideation [Recovered/Resolved]
  - Osteomyelitis [Recovering/Resolving]
  - Bipolar disorder [Unknown]
  - Feeling of relaxation [Not Recovered/Not Resolved]
  - Crying [Not Recovered/Not Resolved]

NARRATIVE: CASE EVENT DATE: 2009
